FAERS Safety Report 6547225-7 (Version None)
Quarter: 2010Q1

REPORT INFORMATION
  Report Type: 
  Country: None (occurrence: None)
  Receive Date: 20100122
  Receipt Date: 20100113
  Transmission Date: 20100710
  Serious: Yes (Other)
  Sender: FDA-Public Use
  Company Number: US-JNJFOC-20100106609

PATIENT
  Age: 56 Year
  Sex: Male

DRUGS (1)
  1. REOPRO [Suspect]
     Indication: MYOCARDIAL INFARCTION

REACTIONS (3)
  - DRUG INEFFECTIVE [None]
  - EXPIRED DRUG ADMINISTERED [None]
  - HYPERCOAGULATION [None]
